FAERS Safety Report 18395293 (Version 3)
Quarter: 2021Q1

REPORT INFORMATION
  Report Type: Other
  Country: US (occurrence: US)
  Receive Date: 20201017
  Receipt Date: 20210222
  Transmission Date: 20210419
  Serious: Yes (Other)
  Sender: FDA-Public Use
  Company Number: US-ROCHE-2696293

PATIENT
  Sex: Female
  Weight: 81.72 kg

DRUGS (17)
  1. METOPROLOL. [Concomitant]
     Active Substance: METOPROLOL
  2. XANAX [Concomitant]
     Active Substance: ALPRAZOLAM
  3. VENCLEXTA [Suspect]
     Active Substance: VENETOCLAX
     Indication: B-CELL LYMPHOMA
     Dosage: TAKE 1 TABLET BY MOUTH FOR 2 WEEK(S) THEN TAKE 2 WEEKS OFF, REPEAT THE CYCLE
     Route: 048
     Dates: start: 201903, end: 202010
  4. AMLODIPINE [Concomitant]
     Active Substance: AMLODIPINE BESYLATE
  5. ALPRAZOLAM. [Concomitant]
     Active Substance: ALPRAZOLAM
     Indication: HIDRADENITIS
  6. ALLOPURINOL. [Concomitant]
     Active Substance: ALLOPURINOL
  7. RITUXAN [Suspect]
     Active Substance: RITUXIMAB
     Route: 065
     Dates: start: 20190213
  8. LEVOTHYROXINE. [Concomitant]
     Active Substance: LEVOTHYROXINE
  9. RITUXAN [Suspect]
     Active Substance: RITUXIMAB
     Route: 065
     Dates: start: 20181121
  10. RITUXAN [Suspect]
     Active Substance: RITUXIMAB
     Route: 065
     Dates: start: 20180213
  11. ONDANSETRON [Concomitant]
     Active Substance: ONDANSETRON
  12. FOLACID [Concomitant]
  13. ALBUTEROL. [Concomitant]
     Active Substance: ALBUTEROL
  14. VENCLEXTA [Suspect]
     Active Substance: VENETOCLAX
     Route: 048
     Dates: start: 201810, end: 201903
  15. RITUXAN [Suspect]
     Active Substance: RITUXIMAB
     Route: 065
     Dates: start: 20180928
  16. RITUXAN [Suspect]
     Active Substance: RITUXIMAB
     Indication: B-CELL LYMPHOMA
     Dosage: 16/JAN/2019, 10/APR/2019, 08/MAY/2019, 13/MAR/2019
     Route: 065
     Dates: start: 20180116
  17. RITUXAN [Suspect]
     Active Substance: RITUXIMAB
     Dosage: 700MG AND 200MG
     Route: 065
     Dates: start: 20181219

REACTIONS (9)
  - Palpitations [Recovering/Resolving]
  - Heart rate increased [Recovering/Resolving]
  - Cardiac flutter [Unknown]
  - Angina pectoris [Recovering/Resolving]
  - Hypertension [Recovering/Resolving]
  - Recurrent cancer [Unknown]
  - Chest pain [Recovering/Resolving]
  - Hypotension [Unknown]
  - Heart rate irregular [Unknown]
